FAERS Safety Report 16469322 (Version 1)
Quarter: 2019Q3

REPORT INFORMATION
  Report Type: Spontaneous
  Country: US (occurrence: US)
  Receive Date: 20190621
  Receipt Date: 20190621
  Transmission Date: 20191004
  Serious: Yes (Disabling, Other)
  Sender: FDA-Public Use
  Company Number: None

PATIENT
  Sex: Female
  Weight: 67.5 kg

DRUGS (9)
  1. CHROMIUM NICOTINATE [Concomitant]
  2. SOLCO CLONAZEPAM [Suspect]
     Active Substance: CLONAZEPAM
     Indication: ANXIETY
     Dosage: ?          QUANTITY:3 TABLET(S);?
     Route: 048
  3. TRAZODONE [Concomitant]
     Active Substance: TRAZODONE HYDROCHLORIDE
  4. LEVOTHYROXINE. [Concomitant]
     Active Substance: LEVOTHYROXINE
  5. FISH OIL [Concomitant]
     Active Substance: FISH OIL
  6. SOLCO CLONAZEPAM [Suspect]
     Active Substance: CLONAZEPAM
     Indication: SLEEP DISORDER THERAPY
     Dosage: ?          QUANTITY:3 TABLET(S);?
     Route: 048
  7. PROBIOTIC [Concomitant]
     Active Substance: PROBIOTICS NOS
  8. LIPITOR [Concomitant]
     Active Substance: ATORVASTATIN CALCIUM
  9. MULTIVITAMINS AND MINERALS [Concomitant]
     Active Substance: MINERALS\VITAMINS

REACTIONS (7)
  - Product solubility abnormal [None]
  - Therapeutic product effect incomplete [None]
  - Oropharyngeal pain [None]
  - Product substitution issue [None]
  - Muscle spasms [None]
  - Product quality issue [None]
  - Headache [None]
